FAERS Safety Report 20235361 (Version 1)
Quarter: 2021Q4

REPORT INFORMATION
  Report Type: Spontaneous
  Country: GB (occurrence: GB)
  Receive Date: 20211228
  Receipt Date: 20211228
  Transmission Date: 20220303
  Serious: Yes (Hospitalization)
  Sender: FDA-Public Use
  Company Number: GB-CRESPROD-2021-00496

PATIENT
  Age: 5 Year
  Sex: Female

DRUGS (2)
  1. FUROSEMIDE [Suspect]
     Active Substance: FUROSEMIDE
     Indication: Product used for unknown indication
     Dosage: UNK
     Route: 065
  2. CO-AMILOFRUSE [Concomitant]
     Active Substance: AMILORIDE\FUROSEMIDE
     Indication: Product used for unknown indication
     Dosage: UNK (2.5/20MG)
     Route: 065

REACTIONS (5)
  - Dyspnoea [Unknown]
  - Insomnia [Unknown]
  - Back pain [Unknown]
  - Joint swelling [Unknown]
  - Skin exfoliation [Unknown]
